FAERS Safety Report 12358374 (Version 1)
Quarter: 2016Q2

REPORT INFORMATION
  Report Type: Spontaneous
  Country: US (occurrence: US)
  Receive Date: 20160512
  Receipt Date: 20160512
  Transmission Date: 20160815
  Serious: Yes (Other)
  Sender: FDA-Public Use
  Company Number: US-AMGEN-USASP2016058123

PATIENT
  Age: 82 Year
  Sex: Female

DRUGS (2)
  1. PROLIA [Suspect]
     Active Substance: DENOSUMAB
     Indication: OSTEOPOROSIS POSTMENOPAUSAL
     Dosage: UNK
     Route: 065
     Dates: start: 201510
  2. ATENOLOL. [Concomitant]
     Active Substance: ATENOLOL
     Indication: HYPERTENSION
     Dosage: UNK

REACTIONS (14)
  - Rash pruritic [Not Recovered/Not Resolved]
  - Throat tightness [Unknown]
  - Skin exfoliation [Unknown]
  - Influenza [Unknown]
  - Rash papular [Not Recovered/Not Resolved]
  - Hypotension [Unknown]
  - Blood pressure fluctuation [Unknown]
  - Rash [Unknown]
  - Rash erythematous [Not Recovered/Not Resolved]
  - Breast operation [Unknown]
  - Discomfort [Unknown]
  - Dyspnoea [Unknown]
  - Heart rate increased [Unknown]
  - Anxiety [Unknown]
